FAERS Safety Report 7574207-9 (Version None)
Quarter: 2011Q2

REPORT INFORMATION
  Report Type: 
  Country: None (occurrence: None)
  Receive Date: 20110627
  Receipt Date: 20110616
  Transmission Date: 20111010
  Serious: Yes (Other)
  Sender: FDA-Public Use
  Company Number: PHHY2010US83078

PATIENT
  Sex: Male

DRUGS (5)
  1. ORAL HYPOGLYCEMIC [Concomitant]
  2. BETA BLOCKING AGENTS [Concomitant]
  3. TASIGNA [Suspect]
     Indication: CHRONIC MYELOID LEUKAEMIA
     Dosage: 300 MG, BID
     Route: 048
     Dates: start: 20101105
  4. PREDNISONE [Concomitant]
     Dosage: 1 MG, UNK
  5. ANTIDIABETICS [Concomitant]

REACTIONS (9)
  - PRURITUS [None]
  - ERYTHEMA [None]
  - CONSTIPATION [None]
  - HAEMORRHOIDS [None]
  - BLOOD GLUCOSE INCREASED [None]
  - WEIGHT INCREASED [None]
  - BURNING SENSATION [None]
  - RASH [None]
  - PAIN [None]
